FAERS Safety Report 10665896 (Version 2)
Quarter: 2015Q1

REPORT INFORMATION
  Report Type: Spontaneous
  Country: BR (occurrence: BR)
  Receive Date: 20141219
  Receipt Date: 20150105
  Transmission Date: 20150720
  Serious: Yes (Hospitalization)
  Sender: FDA-Public Use
  Company Number: PHHY2014BR166199

PATIENT
  Sex: Female
  Weight: 64 kg

DRUGS (1)
  1. FORASEQ [Suspect]
     Active Substance: BUDESONIDE\FORMOTEROL FUMARATE
     Indication: EMPHYSEMA
     Dosage: 1 DF, Q12H (ONE ASPIRATION WITH EACH CAPSULE)
     Route: 055

REACTIONS (2)
  - Influenza [Recovering/Resolving]
  - Fatigue [Not Recovered/Not Resolved]
